FAERS Safety Report 10085925 (Version 2)
Quarter: 2014Q2

REPORT INFORMATION
  Report Type: Spontaneous
  Country: US (occurrence: US)
  Receive Date: 20140418
  Receipt Date: 20140509
  Transmission Date: 20141212
  Serious: No
  Sender: FDA-Public Use
  Company Number: US-BAYER-2014-056586

PATIENT
  Age: 79 Year
  Sex: Female
  Weight: 72 kg

DRUGS (12)
  1. ALEVE CAPLET [Suspect]
     Indication: ARTHRITIS
     Dosage: 2 DF, UNK
     Route: 048
     Dates: start: 20140411, end: 20140411
  2. ALEVE CAPLET [Suspect]
     Indication: ARTHRITIS
     Dosage: 1 DF, UNK
     Dates: start: 20140412, end: 20140414
  3. ALEVE CAPLET [Suspect]
     Indication: ARTHRITIS
     Dosage: 2 DF, UNK
     Route: 048
     Dates: start: 20140415, end: 20140415
  4. BAYER ASPIRIN SUGAR FREE LOW DOSE ENTERIC [Concomitant]
     Indication: ISCHAEMIC HEART DISEASE PROPHYLAXIS
     Dosage: 1 DF, QD
     Route: 048
  5. SERTRALINE [Concomitant]
  6. SIMVASTATIN [Concomitant]
  7. OMEPRAZOLE [Concomitant]
  8. HYDROCHLOROTHIAZIDE W/TRIAMTERENE [Concomitant]
  9. LISINOPRIL [Concomitant]
  10. TYLENOL [PARACETAMOL] [Concomitant]
  11. PRAMIPEXOLE [Concomitant]
  12. CELEBREX [Concomitant]

REACTIONS (4)
  - Nausea [Recovered/Resolved]
  - Flatulence [Not Recovered/Not Resolved]
  - Abdominal distension [Not Recovered/Not Resolved]
  - Abdominal pain upper [Not Recovered/Not Resolved]
